FAERS Safety Report 6244162-2 (Version None)
Quarter: 2009Q2

REPORT INFORMATION
  Report Type: 
  Country: None (occurrence: None)
  Receive Date: 20090625
  Receipt Date: 20090617
  Transmission Date: 20091009
  Serious: Yes (Death)
  Sender: FDA-Public Use
  Company Number: GB-BAYER-200918822GPV

PATIENT
  Age: 82 Year
  Sex: Male

DRUGS (25)
  1. GENTAMICIN [Suspect]
     Indication: CATHETER PLACEMENT
     Route: 030
     Dates: start: 20050628, end: 20050628
  2. CIPROFLOXACIN [Suspect]
     Indication: PNEUMONIA
     Route: 048
     Dates: start: 20050630, end: 20050702
  3. CIPROFLOXACIN [Suspect]
     Route: 042
     Dates: start: 20050628, end: 20050630
  4. FUROSEMIDE [Suspect]
     Indication: URINE OUTPUT DECREASED
     Route: 048
  5. CALCICHEW D3 [Concomitant]
     Indication: DRUG USE FOR UNKNOWN INDICATION
     Route: 048
     Dates: start: 20050628, end: 20050628
  6. DALTEPARIN SODIUM [Concomitant]
     Indication: DRUG USE FOR UNKNOWN INDICATION
     Route: 058
     Dates: start: 20050629, end: 20050629
  7. DALTEPARIN SODIUM [Concomitant]
     Route: 058
     Dates: start: 20050705, end: 20050706
  8. DOTHIEPIN HYDROCHLORIDE [Concomitant]
     Indication: DRUG USE FOR UNKNOWN INDICATION
     Route: 048
     Dates: start: 20050628, end: 20050629
  9. HALOPERIDOL [Concomitant]
     Indication: DRUG USE FOR UNKNOWN INDICATION
     Route: 030
     Dates: start: 20050630, end: 20050701
  10. HYOSCINE [Concomitant]
     Indication: DRUG USE FOR UNKNOWN INDICATION
     Route: 058
     Dates: start: 20050630, end: 20050710
  11. IPRATROPIUM BROMIDE [Concomitant]
     Indication: DRUG USE FOR UNKNOWN INDICATION
     Route: 055
     Dates: start: 20050705
  12. MIDAZOLAM HCL [Concomitant]
     Indication: DRUG USE FOR UNKNOWN INDICATION
     Route: 058
     Dates: start: 20050708
  13. MORPHINE [Concomitant]
     Indication: DRUG USE FOR UNKNOWN INDICATION
     Route: 058
     Dates: start: 20050708
  14. MS CONTIN [Concomitant]
     Indication: DRUG USE FOR UNKNOWN INDICATION
     Route: 048
     Dates: start: 20050628, end: 20050629
  15. OMEPRAZOLE [Concomitant]
     Indication: DRUG USE FOR UNKNOWN INDICATION
     Route: 048
     Dates: start: 20050628, end: 20050701
  16. SANDO-K [Concomitant]
     Indication: DRUG USE FOR UNKNOWN INDICATION
     Route: 048
     Dates: start: 20050708, end: 20050709
  17. TERBUTALINE SULFATE [Concomitant]
     Indication: DRUG USE FOR UNKNOWN INDICATION
     Dosage: 1 PRN
     Route: 055
     Dates: start: 20050628, end: 20050705
  18. WARFARIN [Concomitant]
     Indication: DRUG USE FOR UNKNOWN INDICATION
     Route: 048
     Dates: start: 20050628, end: 20050628
  19. CEFTRIAXONE [Concomitant]
     Indication: DRUG USE FOR UNKNOWN INDICATION
     Route: 042
     Dates: start: 20050701, end: 20050704
  20. DOCUSATE [Concomitant]
     Indication: DRUG USE FOR UNKNOWN INDICATION
     Route: 048
     Dates: start: 20050628, end: 20050628
  21. METRONIDAZOLE [Concomitant]
     Indication: DRUG USE FOR UNKNOWN INDICATION
     Route: 042
     Dates: start: 20050701, end: 20050709
  22. METRONIDAZOLE [Concomitant]
     Route: 048
     Dates: start: 20050701, end: 20050701
  23. ALBUTEROL [Concomitant]
     Indication: DRUG USE FOR UNKNOWN INDICATION
     Route: 055
     Dates: start: 20050705
  24. SODIUM BICARBONATE [Concomitant]
     Indication: DRUG USE FOR UNKNOWN INDICATION
     Route: 048
     Dates: start: 20050708
  25. FUROSEMIDE [Concomitant]
     Route: 042
     Dates: start: 20050630, end: 20050708

REACTIONS (1)
  - RENAL FAILURE [None]
